FAERS Safety Report 9357774 (Version 1)
Quarter: 2013Q2

REPORT INFORMATION
  Report Type: Spontaneous
  Country: SE (occurrence: SE)
  Receive Date: 20130620
  Receipt Date: 20130620
  Transmission Date: 20140414
  Serious: Yes (Hospitalization)
  Sender: FDA-Public Use
  Company Number: SE-PFIZER INC-2013179238

PATIENT
  Age: 41 Year
  Sex: Male

DRUGS (1)
  1. IPREN [Suspect]
     Indication: PYREXIA
     Dosage: 400 MG, UNK
     Route: 048

REACTIONS (1)
  - Neutropenia [Recovered/Resolved]
